FAERS Safety Report 7902560-2 (Version None)
Quarter: 2011Q4

REPORT INFORMATION
  Report Type: 
  Country: None (occurrence: None)
  Receive Date: 20111108
  Receipt Date: 20111028
  Transmission Date: 20120403
  Serious: No
  Sender: FDA-Public Use
  Company Number: US-B.I. PHARMACEUTICALS,INC./RIDGEFIELD-2011-BP-25302BP

PATIENT
  Sex: Male

DRUGS (4)
  1. PRADAXA [Suspect]
     Dosage: 300 MG
     Route: 048
     Dates: start: 20110801
  2. NORVASC [Concomitant]
  3. MEDICATION NOT FURTHER SPECIFIED [Concomitant]
  4. ZOCOR [Concomitant]

REACTIONS (1)
  - MUSCLE SPASMS [None]
